FAERS Safety Report 14787108 (Version 1)
Quarter: 2018Q2

REPORT INFORMATION
  Report Type: Spontaneous
  Country: IN (occurrence: IN)
  Receive Date: 20180421
  Receipt Date: 20180421
  Transmission Date: 20180711
  Serious: Yes (Other)
  Sender: FDA-Public Use
  Company Number: IN-SUN PHARMACEUTICAL INDUSTRIES LTD-2018R1-170329

PATIENT
  Age: 29 Year
  Sex: Male

DRUGS (3)
  1. FLUOXETINE [Suspect]
     Active Substance: FLUOXETINE HYDROCHLORIDE
     Indication: BODY DYSMORPHIC DISORDER
     Dosage: UNK
     Route: 065
  2. RISPERIDONE. [Suspect]
     Active Substance: RISPERIDONE
     Indication: BODY DYSMORPHIC DISORDER
     Dosage: UNK
     Route: 065
  3. TRIFLUOPERAZINE [Suspect]
     Active Substance: TRIFLUOPERAZINE\TRIFLUOPERAZINE HYDROCHLORIDE
     Indication: BODY DYSMORPHIC DISORDER
     Dosage: UNK
     Route: 065

REACTIONS (2)
  - Therapeutic response decreased [Unknown]
  - Drug resistance [Unknown]
